FAERS Safety Report 8430291-1 (Version None)
Quarter: 2012Q2

REPORT INFORMATION
  Report Type: 
  Country: None (occurrence: None)
  Receive Date: 20120612
  Receipt Date: 20120530
  Transmission Date: 20120825
  Serious: Yes (Hospitalization, Other)
  Sender: FDA-Public Use
  Company Number: FR-ELI_LILLY_AND_COMPANY-FR201206001092

PATIENT
  Sex: Male

DRUGS (6)
  1. OLANZAPINE [Suspect]
     Dosage: 210 MG, 2/W
     Route: 030
  2. OLANZAPINE [Suspect]
     Dosage: 210 MG, 3/W
     Route: 030
     Dates: start: 20111101
  3. DEPAKOTE [Concomitant]
     Dosage: UNK
  4. OLANZAPINE [Suspect]
     Indication: BIPOLAR DISORDER
     Dosage: 300 MG, 2/W
     Route: 030
     Dates: start: 20101007
  5. VALIUM [Concomitant]
     Dosage: UNK
  6. ZYPREXA [Suspect]
     Dosage: 10 MG, QD
     Route: 048
     Dates: end: 20101007

REACTIONS (9)
  - TACHYCARDIA [None]
  - CONFUSIONAL STATE [None]
  - SPEECH DISORDER [None]
  - BALANCE DISORDER [None]
  - SOMNOLENCE [None]
  - FATIGUE [None]
  - MENTAL DISORDER [None]
  - SEDATION [None]
  - INAPPROPRIATE SCHEDULE OF DRUG ADMINISTRATION [None]
